FAERS Safety Report 8112237-9 (Version None)
Quarter: 2011Q4

REPORT INFORMATION
  Report Type: 
  Country: None (occurrence: None)
  Receive Date: 20111223
  Receipt Date: 20110318
  Transmission Date: 20120403
  Serious: Yes (Disabling)
  Sender: FDA-Public Use
  Company Number: PHHY2011US18570

PATIENT
  Age: 59 Year
  Sex: Female

DRUGS (6)
  1. CYMBALTA [Concomitant]
  2. SIMVASTATIN [Concomitant]
  3. FOCALIN XR [Suspect]
     Indication: ATTENTION DEFICIT/HYPERACTIVITY DISORDER
     Dosage: ORAL
     Route: 048
     Dates: start: 20100927, end: 20101202
  4. ANTIHYPERTENSIVES (NO INGREDIENT/SUBSTANCES) [Concomitant]
  5. COGENTIN [Concomitant]
  6. KLONOPIN [Concomitant]

REACTIONS (7)
  - HEADACHE [None]
  - LIP SWELLING [None]
  - MUSCLE TWITCHING [None]
  - SWELLING FACE [None]
  - DRY MOUTH [None]
  - TARDIVE DYSKINESIA [None]
  - DYSPEPSIA [None]
